FAERS Safety Report 5524230-0 (Version None)
Quarter: 2007Q4

REPORT INFORMATION
  Report Type: 
  Country: None (occurrence: None)
  Receive Date: 20071121
  Receipt Date: 20071115
  Transmission Date: 20080405
  Serious: Yes (Other)
  Sender: FDA-Public Use
  Company Number: US-PFIZER INC-2007079864

PATIENT
  Sex: Female
  Weight: 56.7 kg

DRUGS (7)
  1. LIPITOR [Suspect]
     Indication: DYSLIPIDAEMIA
     Route: 048
     Dates: start: 20020919, end: 20041116
  2. PROCARDIA XL [Concomitant]
  3. INDERAL [Concomitant]
  4. NIFEDIPINE [Concomitant]
  5. MOTRIN [Concomitant]
  6. XANAX [Concomitant]
  7. CHLORPHENIRAMINE MALEATE [Concomitant]
     Indication: DYSLIPIDAEMIA

REACTIONS (4)
  - ACTIVITIES OF DAILY LIVING IMPAIRED [None]
  - CARDIAC PACEMAKER INSERTION [None]
  - CARPAL TUNNEL SYNDROME [None]
  - MEMORY IMPAIRMENT [None]
